FAERS Safety Report 4976657-3 (Version None)
Quarter: 2006Q2

REPORT INFORMATION
  Report Type: 
  Country: None (occurrence: None)
  Receive Date: 20060419
  Receipt Date: 20050414
  Transmission Date: 20061013
  Serious: Yes (Hospitalization, Other)
  Sender: FDA-Public Use
  Company Number: US-MERCK-0504USA03090

PATIENT
  Age: 50 Year
  Sex: Female
  Weight: 84 kg

DRUGS (5)
  1. GLUCOPHAGE [Concomitant]
     Route: 065
  2. VIOXX [Suspect]
     Indication: PAIN
     Route: 048
     Dates: start: 20010101, end: 20020201
  3. VIOXX [Suspect]
     Route: 048
     Dates: start: 20030801, end: 20030901
  4. ASPIRIN [Concomitant]
     Indication: CEREBROVASCULAR ACCIDENT PROPHYLAXIS
     Route: 065
     Dates: start: 20020101
  5. GLYBURIDE [Concomitant]
     Route: 065

REACTIONS (10)
  - CEREBROVASCULAR ACCIDENT [None]
  - DIABETES MELLITUS INADEQUATE CONTROL [None]
  - DIASTOLIC DYSFUNCTION [None]
  - HYPERLIPIDAEMIA [None]
  - HYPONATRAEMIA [None]
  - PAIN IN EXTREMITY [None]
  - PANCREATITIS [None]
  - TENDONITIS [None]
  - UPPER RESPIRATORY TRACT INFECTION [None]
  - VENTRICULAR HYPERTROPHY [None]
